FAERS Safety Report 5086628-7 (Version None)
Quarter: 2006Q3

REPORT INFORMATION
  Report Type: 
  Country: None (occurrence: None)
  Receive Date: 20060823
  Receipt Date: 20060719
  Transmission Date: 20061208
  Serious: Yes (Other)
  Sender: FDA-Public Use
  Company Number: PHEH2006US09326

PATIENT
  Age: 56 Year
  Sex: Male

DRUGS (12)
  1. ZOMETA [Suspect]
     Indication: METASTASES TO BONE
     Dosage: 4 MG EVERY FOUR WEEKS
     Dates: start: 20051027, end: 20060605
  2. GEMZAR [Concomitant]
     Indication: ADENOCARCINOMA
     Dosage: 11 CYCLES
     Dates: start: 20051020
  3. CALCIUM GLUCONATE [Concomitant]
     Indication: ADENOCARCINOMA
     Dosage: 11 CYCLES
  4. LEUCOVORIN CALCIUM [Concomitant]
     Indication: ADENOCARCINOMA
     Dosage: 11 CYCLES
  5. FLUOROURACIL [Concomitant]
     Indication: ADENOCARCINOMA
     Dosage: 11 CYCLES
  6. ZOFRAN [Concomitant]
     Indication: PROPHYLAXIS
  7. DECADRON [Concomitant]
     Indication: PROPHYLAXIS
  8. IRON SUPPLEMENTS [Concomitant]
  9. VITAMINS NOS [Concomitant]
  10. DURAGESIC-100 [Concomitant]
     Route: 062
  11. ZOLOFT [Concomitant]
  12. PROCRIT [Concomitant]

REACTIONS (5)
  - ATROPHY [None]
  - BONE DISORDER [None]
  - ERYTHEMA [None]
  - OSTEONECROSIS [None]
  - SWELLING [None]
